FAERS Safety Report 14918889 (Version 1)
Quarter: 2018Q2

REPORT INFORMATION
  Report Type: Spontaneous
  Country: US (occurrence: US)
  Receive Date: 20180521
  Receipt Date: 20180521
  Transmission Date: 20180711
  Serious: No
  Sender: FDA-Public Use
  Company Number: US-BION-006388

PATIENT
  Sex: Female

DRUGS (1)
  1. IBUPROFEN SOFTGELS BION [Suspect]
     Active Substance: IBUPROFEN
     Indication: PAIN
     Dosage: 1 CAPSULE EVERY 4 TO 6 HOURS WHILE SYMPTOMS PERSIST
     Route: 048

REACTIONS (6)
  - Product odour abnormal [Unknown]
  - Malaise [Recovered/Resolved]
  - Poor quality drug administered [Not Recovered/Not Resolved]
  - Abdominal pain upper [Recovered/Resolved]
  - Diarrhoea [Recovered/Resolved]
  - Incorrect dosage administered [Not Recovered/Not Resolved]
